FAERS Safety Report 8063352-X (Version None)
Quarter: 2012Q1

REPORT INFORMATION
  Report Type: 
  Country: None (occurrence: None)
  Receive Date: 20120123
  Receipt Date: 20120117
  Transmission Date: 20120608
  Serious: Yes (Death, Other)
  Sender: FDA-Public Use
  Company Number: PHHY2012DE004558

PATIENT
  Age: 65 Year
  Sex: Female

DRUGS (6)
  1. PENTAMIDINE [Concomitant]
  2. FLUDARABINE PHOSPHATE [Concomitant]
     Dosage: 90 MG/M2, UNK
  3. CYCLOSPORINE [Suspect]
     Indication: PROPHYLAXIS AGAINST GRAFT VERSUS HOST DISEASE
     Route: 042
  4. PREDNISOLONE [Concomitant]
     Indication: PROPHYLAXIS AGAINST GRAFT VERSUS HOST DISEASE
  5. ACYCLOVIR [Concomitant]
  6. MELPHALAN [Concomitant]
     Dosage: 140 MG/M2, UNK

REACTIONS (5)
  - MULTI-ORGAN FAILURE [None]
  - TOXOPLASMOSIS [None]
  - ACUTE GRAFT VERSUS HOST DISEASE IN INTESTINE [None]
  - ENGRAFTMENT SYNDROME [None]
  - JAUNDICE [None]
